FAERS Safety Report 25189686 (Version 1)
Quarter: 2025Q2

REPORT INFORMATION
  Report Type: Spontaneous
  Country: US (occurrence: None)
  Receive Date: 20250411
  Receipt Date: 20250411
  Transmission Date: 20250716
  Serious: Yes (Life-Threatening, Hospitalization)
  Sender: FDA-CTU
  Company Number: None

PATIENT
  Age: 52 Year
  Sex: Male
  Weight: 99.2 kg

DRUGS (10)
  1. ADAGRASIB [Suspect]
     Active Substance: ADAGRASIB
     Indication: Lung adenocarcinoma
     Dosage: FREQUENCY : TWICE A DAY;?
     Route: 048
     Dates: start: 20250320, end: 20250408
  2. AZELASTINE [Concomitant]
     Active Substance: AZELASTINE
     Dates: start: 20250403
  3. LOPERAMIDE [Concomitant]
     Active Substance: LOPERAMIDE
     Dates: start: 20250325
  4. ONDANSETRON [Concomitant]
     Active Substance: ONDANSETRON
     Dates: start: 20250318
  5. PENTOXIFYLLINE [Concomitant]
     Active Substance: PENTOXIFYLLINE
     Dates: start: 20250227
  6. DEXAMETHASONE [Concomitant]
     Active Substance: DEXAMETHASONE
  7. CHONDROITIN SULFATE (BOVINE)\GLUCOSAMINE SULFATE [Concomitant]
     Active Substance: CHONDROITIN SULFATE (BOVINE)\GLUCOSAMINE SULFATE
  8. NIVOLUMAB [Concomitant]
     Active Substance: NIVOLUMAB
     Dates: start: 20241021, end: 20250314
  9. IPILIMUMAB [Concomitant]
     Active Substance: IPILIMUMAB
     Dates: start: 20241021, end: 20250314
  10. veonfer [Concomitant]
     Dates: start: 20250324, end: 20250407

REACTIONS (4)
  - Aspartate aminotransferase increased [None]
  - Alanine aminotransferase increased [None]
  - Blood bilirubin increased [None]
  - Blood alkaline phosphatase increased [None]

NARRATIVE: CASE EVENT DATE: 20250408
